FAERS Safety Report 6202489-4 (Version None)
Quarter: 2009Q2

REPORT INFORMATION
  Report Type: 
  Country: None (occurrence: None)
  Receive Date: 20090520
  Receipt Date: 20090513
  Transmission Date: 20091009
  Serious: Yes (Other)
  Sender: FDA-Public Use
  Company Number: PAR_02981_2009

PATIENT
  Age: 5 Day
  Sex: Female
  Weight: 1.3 kg

DRUGS (1)
  1. IBUPROFEN [Suspect]
     Indication: PATENT DUCTUS ARTERIOSUS
     Dosage: (5 MG/KG 1X/12 HOURS ORAL), (10 MG/KG 1X ORAL)
     Route: 048

REACTIONS (3)
  - OEDEMA NEONATAL [None]
  - OFF LABEL USE [None]
  - RENAL FAILURE NEONATAL [None]
